FAERS Safety Report 20122675 (Version 2)
Quarter: 2021Q4

REPORT INFORMATION
  Report Type: Spontaneous
  Country: FR (occurrence: FR)
  Receive Date: 20211128
  Receipt Date: 20211230
  Transmission Date: 20220303
  Serious: Yes (Disabling, Congenital Anomaly, Other)
  Sender: FDA-Public Use
  Company Number: FR-ABBVIE-21K-056-4176704-00

PATIENT
  Sex: Male

DRUGS (1)
  1. VALPROATE SODIUM [Suspect]
     Active Substance: VALPROATE SODIUM
     Indication: Maternal exposure timing unspecified
     Route: 064

REACTIONS (17)
  - Anal abscess [Unknown]
  - Foetal anticonvulsant syndrome [Unknown]
  - Foot deformity [Unknown]
  - Encopresis [Unknown]
  - Dysmorphism [Unknown]
  - Scoliosis [Unknown]
  - Plagiocephaly [Unknown]
  - Dysmorphism [Unknown]
  - Hypermobility syndrome [Unknown]
  - Tooth disorder [Unknown]
  - Ear, nose and throat disorder [Unknown]
  - Ear, nose and throat disorder [Unknown]
  - Ear, nose and throat disorder [Unknown]
  - Sever^s disease [Unknown]
  - Respiratory disorder [Unknown]
  - Foetal exposure during pregnancy [Unknown]
  - Disability [Unknown]
